FAERS Safety Report 20861378 (Version 3)
Quarter: 2022Q2

REPORT INFORMATION
  Report Type: Spontaneous
  Country: US (occurrence: US)
  Receive Date: 20220523
  Receipt Date: 20220616
  Transmission Date: 20220720
  Serious: No
  Sender: FDA-Public Use
  Company Number: US-PFIZER INC-202200738191

PATIENT
  Age: 74 Year
  Sex: Female
  Weight: 57.15 kg

DRUGS (3)
  1. IBRANCE [Suspect]
     Active Substance: PALBOCICLIB
     Dosage: UNK
  2. VERZENIO [Suspect]
     Active Substance: ABEMACICLIB
     Indication: Neoplasm malignant
     Dosage: UNK, 2X/DAY (TAKING 1/2 A PILL TWICE DAILY)
  3. VERZENIO [Suspect]
     Active Substance: ABEMACICLIB
     Dosage: UNK (TWO A DAY, THEN TO ONE AND A HALF A DAY, THEN DOWN TO ONE)
     Dates: start: 20220101, end: 20220414

REACTIONS (3)
  - Diarrhoea [Unknown]
  - Abdominal discomfort [Unknown]
  - Nausea [Unknown]
